FAERS Safety Report 7718373-0 (Version None)
Quarter: 2011Q3

REPORT INFORMATION
  Report Type: 
  Country: None (occurrence: None)
  Receive Date: 20110830
  Receipt Date: 20110823
  Transmission Date: 20111222
  Serious: No
  Sender: FDA-Public Use
  Company Number: US-PFIZER INC-2011196018

PATIENT
  Age: 58 Year
  Sex: Male

DRUGS (1)
  1. SUTENT [Suspect]
     Indication: METASTATIC RENAL CELL CARCINOMA

REACTIONS (6)
  - STOMATITIS [None]
  - FATIGUE [None]
  - DYSGEUSIA [None]
  - ARTHRALGIA [None]
  - INFLUENZA LIKE ILLNESS [None]
  - DECREASED APPETITE [None]
